FAERS Safety Report 14303186 (Version 1)
Quarter: 2017Q4

REPORT INFORMATION
  Report Type: Spontaneous
  Country: DE (occurrence: DE)
  Receive Date: 20171219
  Receipt Date: 20171219
  Transmission Date: 20180321
  Serious: Yes (Hospitalization)
  Sender: FDA-Public Use
  Company Number: DE-TEVA-2017-DE-832598

PATIENT
  Age: 15 Year
  Sex: Female

DRUGS (1)
  1. SALBUTAMOL-RATIOPHARM INHALATIONSLOESUNG [Suspect]
     Active Substance: ALBUTEROL
     Indication: COUGH
     Dosage: 3 DOSAGE FORMS DAILY;
     Route: 055
     Dates: start: 20171121

REACTIONS (4)
  - Aggression [Unknown]
  - Delusion [Unknown]
  - Sleep disorder [Unknown]
  - Mood swings [Unknown]

NARRATIVE: CASE EVENT DATE: 201711
